FAERS Safety Report 7183729-4 (Version None)
Quarter: 2010Q4

REPORT INFORMATION
  Report Type: 
  Country: None (occurrence: None)
  Receive Date: 20101220
  Receipt Date: 20101220
  Transmission Date: 20110411
  Serious: Yes (Hospitalization)
  Sender: FDA-Public Use
  Company Number: None

PATIENT
  Age: 64 Year
  Sex: Female
  Weight: 76 kg

DRUGS (7)
  1. COUMADIN [Suspect]
     Indication: DEEP VEIN THROMBOSIS
     Dosage: 5MG / 2.5MG MWF/ T TH SS PO (RECENT)
     Route: 048
  2. LOVENOX [Suspect]
     Indication: DEEP VEIN THROMBOSIS
     Dosage: 70MG Q12 SQ (RECENT)
     Route: 058
  3. M.V.I. [Concomitant]
  4. OXYCODONE [Concomitant]
  5. BACLOFEN [Concomitant]
  6. PROTONIX [Concomitant]
  7. MYCELES TRACHE [Concomitant]

REACTIONS (1)
  - SMALL INTESTINAL HAEMORRHAGE [None]
